FAERS Safety Report 4840730-0 (Version None)
Quarter: 2005Q4

REPORT INFORMATION
  Report Type: 
  Country: None (occurrence: None)
  Receive Date: 20051027
  Receipt Date: 20050121
  Transmission Date: 20060501
  Serious: Yes (Other)
  Sender: FDA-Public Use
  Company Number: HQWYE202816JUL04

PATIENT
  Age: 35 Year
  Sex: Female
  Weight: 64.92 kg

DRUGS (2)
  1. PREMARIN [Suspect]
     Dates: start: 19800101
  2. SYNTHROID [Concomitant]

REACTIONS (2)
  - DEEP VEIN THROMBOSIS [None]
  - PULMONARY EMBOLISM [None]
